FAERS Safety Report 4292031-X (Version None)
Quarter: 2004Q1

REPORT INFORMATION
  Report Type: 
  Country: None (occurrence: None)
  Receive Date: 20040126
  Receipt Date: 20031111
  Transmission Date: 20041129
  Serious: No
  Sender: FDA-Public Use
  Company Number: USA031050903

PATIENT
  Age: 73 Year
  Sex: Female

DRUGS (8)
  1. FORTEO [Suspect]
     Indication: OSTEOPOROSIS
     Dosage: 20 UG/DAY
     Dates: start: 20031013
  2. EVISTA [Suspect]
     Indication: OSTEOPOROSIS
     Dates: start: 20020101
  3. METOPROLOL [Concomitant]
  4. ASPIRIN [Concomitant]
  5. VITAMIN E [Concomitant]
  6. CALCIUM WITH VITAMIN D [Concomitant]
  7. SYNTHROID [Concomitant]
  8. LECITHIN [Concomitant]

REACTIONS (3)
  - BURNING SENSATION [None]
  - RASH PAPULAR [None]
  - SENSORY DISTURBANCE [None]
